FAERS Safety Report 23878048 (Version 1)
Quarter: 2024Q2

REPORT INFORMATION
  Report Type: Spontaneous
  Country: PT (occurrence: PT)
  Receive Date: 20240521
  Receipt Date: 20240521
  Transmission Date: 20240716
  Serious: Yes (Life-Threatening, Hospitalization)
  Sender: FDA-Public Use
  Company Number: PT-GUERBET / MARTINS + FERNANDES-PT-20240007

PATIENT
  Age: 47 Year
  Sex: Female

DRUGS (2)
  1. LIPIODOL [Suspect]
     Active Substance: ETHIODIZED OIL
     Indication: Sclerotherapy
     Dosage: 1 MG
  2. HISTOACRYL [Suspect]
     Active Substance: ENBUCRILATE
     Indication: Sclerotherapy

REACTIONS (3)
  - Bacteraemia [Unknown]
  - Product use in unapproved indication [Unknown]
  - Device extrusion [Unknown]
